FAERS Safety Report 17822725 (Version 1)
Quarter: 2020Q2

REPORT INFORMATION
  Report Type: Spontaneous
  Country: IT (occurrence: IT)
  Receive Date: 20200526
  Receipt Date: 20200526
  Transmission Date: 20200714
  Serious: Yes (Other)
  Sender: FDA-Public Use
  Company Number: IT-ROCHE-2607265

PATIENT
  Age: 74 Year
  Sex: Male
  Weight: 71 kg

DRUGS (1)
  1. PIRFENIDONE. [Suspect]
     Active Substance: PIRFENIDONE
     Indication: IDIOPATHIC PULMONARY FIBROSIS
     Route: 048
     Dates: start: 20180117

REACTIONS (1)
  - Cutaneous lupus erythematosus [Recovered/Resolved with Sequelae]

NARRATIVE: CASE EVENT DATE: 20190912
